FAERS Safety Report 8405116-0 (Version None)
Quarter: 2012Q2

REPORT INFORMATION
  Report Type: 
  Country: None (occurrence: None)
  Receive Date: 20120602
  Receipt Date: 20120515
  Transmission Date: 20120825
  Serious: No
  Sender: FDA-Public Use
  Company Number: US-BAYER-2012-049595

PATIENT
  Age: 90 Year
  Sex: Female
  Weight: 49.887 kg

DRUGS (6)
  1. ACIDOPHILUS [Concomitant]
  2. RANITIDINE [Concomitant]
  3. PHILLIPS' MILK OF MAGNESIA LIQUID ORIGINAL [Suspect]
     Indication: CONSTIPATION
     Dosage: 2 TBSP QD
     Route: 048
     Dates: start: 20120515
  4. ASPIRIN [Concomitant]
     Indication: ISCHAEMIC HEART DISEASE PROPHYLAXIS
     Dosage: 1 DF, QD
  5. DIGOXIN [Concomitant]
  6. SUSTAIN DROPS [Concomitant]

REACTIONS (1)
  - CONSTIPATION [None]
